FAERS Safety Report 5270336-3 (Version None)
Quarter: 2007Q1

REPORT INFORMATION
  Report Type: 
  Country: None (occurrence: None)
  Receive Date: 20070320
  Receipt Date: 20070310
  Transmission Date: 20070707
  Serious: Yes (Hospitalization, Other)
  Sender: FDA-Public Use
  Company Number: US-PFIZER INC-2007001107

PATIENT
  Sex: Female
  Weight: 86.6 kg

DRUGS (7)
  1. CHANTIX [Suspect]
     Indication: SMOKER
     Dates: start: 20061030, end: 20061130
  2. CHANTIX [Suspect]
     Indication: SMOKING CESSATION THERAPY
  3. ACETYLSALICYLIC ACID SRT [Concomitant]
     Dosage: DAILY DOSE:81MG
  4. LEXAPRO [Concomitant]
     Dosage: DAILY DOSE:10MG
  5. LIPITOR [Concomitant]
     Dosage: DAILY DOSE:20MG
  6. QUINAPRIL AND HYDROCHLOROTHIAZIDE [Concomitant]
     Dosage: TEXT:20/12.5 MG
  7. PREVACID [Concomitant]

REACTIONS (8)
  - ABDOMINAL DISTENSION [None]
  - CARDIAC FAILURE CONGESTIVE [None]
  - CHEST PAIN [None]
  - DYSPNOEA [None]
  - OEDEMA [None]
  - OEDEMA PERIPHERAL [None]
  - SWELLING FACE [None]
  - WEIGHT INCREASED [None]
